FAERS Safety Report 9783513 (Version 2)
Quarter: 2014Q1

REPORT INFORMATION
  Report Type: Spontaneous
  Country: IT (occurrence: IT)
  Receive Date: 20131226
  Receipt Date: 20140108
  Transmission Date: 20141002
  Serious: Yes (Hospitalization)
  Sender: FDA-Public Use
  Company Number: IT-JNJFOC-20131214220

PATIENT
  Age: 91 Year
  Sex: Female
  Weight: 80 kg

DRUGS (1)
  1. SERENASE [Suspect]
     Indication: PRODUCT USED FOR UNKNOWN INDICATION
     Route: 048
     Dates: start: 20130109, end: 20130109

REACTIONS (2)
  - Somnolence [Recovered/Resolved]
  - Wrong drug administered [Unknown]
